FAERS Safety Report 6273479-0 (Version None)
Quarter: 2009Q3

REPORT INFORMATION
  Report Type: 
  Country: None (occurrence: None)
  Receive Date: 20090716
  Receipt Date: 20090707
  Transmission Date: 20100115
  Serious: Yes (Life-Threatening, Hospitalization)
  Sender: FDA-Public Use
  Company Number: 2009-200284-NL

PATIENT
  Age: 68 Year
  Sex: Female

DRUGS (7)
  1. DEXAMETHASONE [Suspect]
     Dosage: DF
     Dates: start: 20090423
  2. SPRYCEL [Suspect]
     Indication: ACUTE LYMPHOCYTIC LEUKAEMIA
     Dosage: 70 MG BID
     Route: 048
     Dates: start: 20090414
  3. METHOTREXATE [Suspect]
     Indication: ACUTE LYMPHOCYTIC LEUKAEMIA
     Dosage: 700 MG
     Route: 042
     Dates: start: 20090423, end: 20090423
  4. CYTARABINE [Suspect]
     Indication: ACUTE LYMPHOCYTIC LEUKAEMIA
     Dosage: 2800 MG
     Route: 042
     Dates: start: 20090425, end: 20090426
  5. CYCLOPHOSPHAMIDE [Suspect]
     Dosage: DF
     Dates: start: 20090423
  6. VINCRISTINE SULFATE [Suspect]
     Dosage: DF
     Dates: start: 20090423
  7. DOXORUBICIN HCL [Suspect]
     Dosage: DF
     Dates: start: 20090423

REACTIONS (3)
  - ANAEMIA [None]
  - PLATELET COUNT DECREASED [None]
  - WHITE BLOOD CELL COUNT DECREASED [None]
